FAERS Safety Report 17858910 (Version 1)
Quarter: 2020Q2

REPORT INFORMATION
  Report Type: Spontaneous
  Country: US (occurrence: US)
  Receive Date: 20200603
  Receipt Date: 20200603
  Transmission Date: 20200714
  Serious: Yes (Other)
  Sender: FDA-Public Use
  Company Number: None

PATIENT
  Age: 75 Year
  Sex: Male
  Weight: 80.29 kg

DRUGS (14)
  1. LUPRON DEPOT [Suspect]
     Active Substance: LEUPROLIDE ACETATE
     Indication: RADIOTHERAPY
     Dosage: ?          OTHER FREQUENCY:Q6 MONTH;?
     Route: 041
     Dates: start: 20191022
  2. VALANCYCLOVIR [Concomitant]
  3. RANOLAZINE. [Concomitant]
     Active Substance: RANOLAZINE
  4. PREVACID [Concomitant]
     Active Substance: LANSOPRAZOLE
  5. VIT D [Concomitant]
     Active Substance: VITAMIN D NOS
  6. CARVIDILOL [Concomitant]
  7. FLOMAX [Concomitant]
     Active Substance: TAMSULOSIN HYDROCHLORIDE
  8. TYLENOL [Concomitant]
     Active Substance: ACETAMINOPHEN
  9. DOXAZOCIN [Concomitant]
     Active Substance: DOXAZOSIN MESYLATE
  10. NOVOLOG [Concomitant]
     Active Substance: INSULIN ASPART
  11. DIPHENHYDRAMINE. [Concomitant]
     Active Substance: DIPHENHYDRAMINE
  12. BACLOFEN. [Concomitant]
     Active Substance: BACLOFEN
  13. CLOPIDOGREL [Concomitant]
     Active Substance: CLOPIDOGREL BISULFATE
  14. BASAGLAR [Concomitant]
     Active Substance: INSULIN GLARGINE

REACTIONS (6)
  - Paraesthesia [None]
  - Trigger finger [None]
  - Disease progression [None]
  - Peripheral swelling [None]
  - Hand deformity [None]
  - Extremity contracture [None]

NARRATIVE: CASE EVENT DATE: 20200130
